FAERS Safety Report 4610057-0 (Version None)
Quarter: 2005Q1

REPORT INFORMATION
  Report Type: 
  Country: None (occurrence: None)
  Receive Date: 20050316
  Receipt Date: 20050309
  Transmission Date: 20050727
  Serious: Yes (Life-Threatening)
  Sender: FDA-Public Use
  Company Number: JP-GLAXOSMITHKLINE-B0374382A

PATIENT
  Age: 26 Year
  Sex: Female

DRUGS (7)
  1. PAXIL [Suspect]
     Indication: PANIC DISORDER
     Route: 048
     Dates: start: 20041101, end: 20050119
  2. MEILAX [Concomitant]
     Indication: PANIC DISORDER
     Route: 048
     Dates: start: 20041101
  3. DEPAS [Concomitant]
     Indication: PANIC DISORDER
     Route: 048
     Dates: start: 20041101
  4. SILECE [Concomitant]
     Indication: INSOMNIA
     Dosage: 2MG PER DAY
     Route: 048
     Dates: start: 20041227
  5. SOLANAX [Concomitant]
     Indication: PANIC DISORDER
     Dosage: .4MG THREE TIMES PER DAY
     Route: 048
     Dates: start: 20050112
  6. DEPROMEL [Concomitant]
     Indication: PANIC DISORDER
     Dosage: 25MG THREE TIMES PER DAY
     Route: 048
     Dates: start: 20050105
  7. GASMOTIN [Concomitant]
     Indication: NAUSEA
     Dosage: 5MG THREE TIMES PER DAY
     Route: 048
     Dates: start: 20041129

REACTIONS (4)
  - ANXIETY [None]
  - DISSOCIATION [None]
  - SELF INJURIOUS BEHAVIOUR [None]
  - SUICIDAL IDEATION [None]
